FAERS Safety Report 8888363 (Version 8)
Quarter: 2014Q3

REPORT INFORMATION
  Report Type: Spontaneous
  Country: US (occurrence: US)
  Receive Date: 20121106
  Receipt Date: 20140725
  Transmission Date: 20150326
  Serious: Yes (Other)
  Sender: FDA-Public Use
  Company Number: PHEH2012US021716

PATIENT
  Sex: Female
  Weight: 45.35 kg

DRUGS (1)
  1. ZOMETA [Suspect]
     Active Substance: ZOLEDRONIC ACID
     Indication: OSTEOPOROSIS
     Route: 042
     Dates: start: 20040322, end: 20051102

REACTIONS (25)
  - Abscess jaw [Unknown]
  - Cystitis interstitial [Unknown]
  - Kyphosis [Unknown]
  - Bone swelling [Unknown]
  - Haematuria [Unknown]
  - Tooth loss [Unknown]
  - Balance disorder [Unknown]
  - Osteonecrosis of jaw [Recovered/Resolved]
  - Osteitis [Unknown]
  - Bursa disorder [Unknown]
  - Tooth fracture [Unknown]
  - Periostitis [Unknown]
  - Tendon disorder [Unknown]
  - Pain in extremity [Unknown]
  - Contusion [Unknown]
  - Joint stiffness [Unknown]
  - Exposed bone in jaw [Unknown]
  - Excessive granulation tissue [Unknown]
  - Humerus fracture [Recovered/Resolved]
  - Primary sequestrum [Unknown]
  - Pneumonia [Unknown]
  - Vitamin D deficiency [Unknown]
  - Joint range of motion decreased [Unknown]
  - Diplopia [Unknown]
  - Musculoskeletal pain [Unknown]
